FAERS Safety Report 8012651-6 (Version None)
Quarter: 2011Q4

REPORT INFORMATION
  Report Type: 
  Country: None (occurrence: None)
  Receive Date: 20111223
  Receipt Date: 20111223
  Transmission Date: 20120403
  Serious: Yes (Disabling)
  Sender: FDA-Public Use
  Company Number: None

PATIENT
  Age: 40 Year
  Sex: Female
  Weight: 117.028 kg

DRUGS (1)
  1. CIPROFLOXACIN [Suspect]
     Indication: CYSTITIS
     Dosage: 500 MG BID PO
     Route: 048
     Dates: start: 20111112, end: 20111116

REACTIONS (4)
  - BURNING SENSATION [None]
  - ARTHROPATHY [None]
  - FEELING HOT [None]
  - GAIT DISTURBANCE [None]
